FAERS Safety Report 14412264 (Version 1)
Quarter: 2018Q1

REPORT INFORMATION
  Report Type: Spontaneous
  Country: US (occurrence: US)
  Receive Date: 20180117
  Receipt Date: 20180117
  Transmission Date: 20180509
  Serious: Yes (Disabling, Other)
  Sender: FDA-Public Use
  Company Number: None

PATIENT
  Age: 84 Year
  Sex: Male
  Weight: 85.05 kg

DRUGS (18)
  1. BRINZOLMIDE EYE DROPS [Concomitant]
  2. LATANOPROST EYE DROPS [Concomitant]
     Active Substance: LATANOPROST
  3. AVODART [Concomitant]
     Active Substance: DUTASTERIDE
  4. HYDROCHLOROTHIAZIDE. [Concomitant]
     Active Substance: HYDROCHLOROTHIAZIDE
  5. VITAMIN C [Concomitant]
     Active Substance: ASCORBIC ACID
  6. VITAMIN E [Concomitant]
     Active Substance: .ALPHA.-TOCOPHEROL
  7. ALOPURINOL [Suspect]
     Active Substance: ALLOPURINOL
  8. JANUVIA [Suspect]
     Active Substance: SITAGLIPTIN PHOSPHATE
     Indication: DIABETES MELLITUS
     Dosage: ?          QUANTITY:30 TABLET(S);?
     Dates: start: 20160130, end: 20160130
  9. ISOSORB MONONITRATE [Concomitant]
  10. BABY ASPIRIN [Concomitant]
     Active Substance: ASPIRIN
  11. LOSARTAN. [Concomitant]
     Active Substance: LOSARTAN
  12. VITAMIN D [Concomitant]
     Active Substance: CHOLECALCIFEROL
  13. GLUCOPHAGE XR [Suspect]
     Active Substance: METFORMIN HYDROCHLORIDE
     Indication: DIABETES MELLITUS
     Dosage: ?          QUANTITY:60 TABLET(S);?
     Route: 048
     Dates: start: 20170118, end: 20171130
  14. UBIQUINONE [Concomitant]
     Active Substance: UBIDECARENONE
  15. COQ10 [Concomitant]
     Active Substance: UBIDECARENONE
  16. AMLODIPINE [Concomitant]
     Active Substance: AMLODIPINE BESYLATE
  17. MAGNESIUM + CALCIUM [Concomitant]
  18. VITAMIN B-1 [Concomitant]
     Active Substance: THIAMINE

REACTIONS (3)
  - Gait inability [None]
  - Sciatica [None]
  - Neuralgia [None]

NARRATIVE: CASE EVENT DATE: 20171203
